FAERS Safety Report 18319428 (Version 1)
Quarter: 2020Q3

REPORT INFORMATION
  Report Type: Other
  Country: IN (occurrence: IN)
  Receive Date: 20200928
  Receipt Date: 20200928
  Transmission Date: 20201103
  Serious: Yes (Other)
  Sender: FDA-Public Use
  Company Number: IN-ROCHE-2685249

PATIENT
  Sex: Female

DRUGS (1)
  1. ACCENTRIX [Suspect]
     Active Substance: RANIBIZUMAB
     Indication: DIABETIC RETINAL OEDEMA
     Dosage: 0.05 MG, ONCE/SINGLE
     Route: 047

REACTIONS (2)
  - Retinal haemorrhage [Unknown]
  - Visual impairment [Not Recovered/Not Resolved]
